FAERS Safety Report 6121316-7 (Version None)
Quarter: 2009Q1

REPORT INFORMATION
  Report Type: 
  Country: None (occurrence: None)
  Receive Date: 20090317
  Receipt Date: 20090312
  Transmission Date: 20090719
  Serious: Yes (Life-Threatening)
  Sender: FDA-Public Use
  Company Number: FR-AVENTIS-200910086FR

PATIENT
  Age: 84 Year
  Sex: Female

DRUGS (8)
  1. CLAFORAN [Suspect]
     Dates: start: 20080612
  2. CIFLOX                             /00697201/ [Suspect]
     Route: 048
     Dates: start: 20080613
  3. TRIFLUCAN [Suspect]
     Route: 048
  4. GENTALLINE [Suspect]
     Dates: start: 20080612, end: 20080613
  5. APROVEL [Concomitant]
  6. VASTAREL [Concomitant]
  7. IMOVANE [Concomitant]
  8. PROPOFAN                           /00765201/ [Concomitant]

REACTIONS (4)
  - ATRIAL FIBRILLATION [None]
  - CLOSTRIDIUM DIFFICILE COLITIS [None]
  - DIARRHOEA [None]
  - HYPOKALAEMIA [None]
